FAERS Safety Report 6408276-6 (Version None)
Quarter: 2009Q4

REPORT INFORMATION
  Report Type: 
  Country: None (occurrence: None)
  Receive Date: 20091021
  Receipt Date: 20091020
  Transmission Date: 20100525
  Serious: Yes (Other)
  Sender: FDA-Public Use
  Company Number: US-PFIZER INC-2009197855

PATIENT
  Sex: Male

DRUGS (1)
  1. LIPITOR [Suspect]
     Indication: BLOOD CHOLESTEROL
     Dosage: UNK

REACTIONS (6)
  - HEPATIC ENZYME INCREASED [None]
  - HYPOAESTHESIA [None]
  - MUSCLE DISORDER [None]
  - MUSCLE SPASMS [None]
  - PARAESTHESIA [None]
  - VASCULAR GRAFT [None]
